FAERS Safety Report 5520480-8 (Version None)
Quarter: 2007Q4

REPORT INFORMATION
  Report Type: 
  Country: None (occurrence: None)
  Receive Date: 20071119
  Receipt Date: 20071107
  Transmission Date: 20080405
  Serious: Yes (Other)
  Sender: FDA-Public Use
  Company Number: BR-ELI_LILLY_AND_COMPANY-BR200711001807

PATIENT
  Sex: Female
  Weight: 66 kg

DRUGS (2)
  1. FORTEO [Suspect]
     Indication: OSTEOPOROSIS
     Dosage: 20 UG, DAILY (1/D)
     Route: 058
  2. BALCOR [Concomitant]
     Indication: HYPERTENSION
     Dosage: 60 MG, 2/D
     Route: 048

REACTIONS (1)
  - DENGUE FEVER [None]
